FAERS Safety Report 18997356 (Version 1)
Quarter: 2021Q1

REPORT INFORMATION
  Report Type: Spontaneous
  Country: RO (occurrence: RO)
  Receive Date: 20210311
  Receipt Date: 20210311
  Transmission Date: 20210420
  Serious: Yes (Life-Threatening, Hospitalization)
  Sender: FDA-Public Use
  Company Number: RO-STRIDES ARCOLAB LIMITED-2021SP002893

PATIENT
  Age: 46 Year
  Sex: Male

DRUGS (28)
  1. CASPOFUNGIN [Interacting]
     Active Substance: CASPOFUNGIN
     Dosage: UNK
  2. TACROLIMUS. [Interacting]
     Active Substance: TACROLIMUS
     Dosage: 2 MILLIGRAM, PER DAY
     Route: 065
  3. TACROLIMUS. [Interacting]
     Active Substance: TACROLIMUS
     Dosage: 1.5 MILLIGRAM PER DAY
     Route: 065
  4. TACROLIMUS. [Interacting]
     Active Substance: TACROLIMUS
     Dosage: 2.5 MILLIGRAM PER DAY
     Route: 065
  5. AMOXICILLIN/CLAVULANIC ACID [Interacting]
     Active Substance: AMOXICILLIN\CLAVULANIC ACID
     Indication: DIARRHOEA
     Dosage: 125 MILLIGRAM, BID (CLAVULANIC ACID)
     Route: 065
  6. AZITHROMYCIN ANHYDROUS. [Interacting]
     Active Substance: AZITHROMYCIN ANHYDROUS
     Indication: PRODUCTIVE COUGH
     Dosage: 500 MILLIGRAM PER DAY
     Route: 065
  7. BASILIXIMAB [Concomitant]
     Active Substance: BASILIXIMAB
     Indication: RENAL TRANSPLANT
     Dosage: UNK
     Route: 065
  8. COTRIMOXAZOLE [Interacting]
     Active Substance: SULFAMETHOXAZOLE\TRIMETHOPRIM
     Indication: ANTIBIOTIC THERAPY
     Dosage: 400 MILLIGRAM PER DAY (TRIMETHROPRIM)
     Route: 065
  9. LOPINAVIR/RITONAVIR [Interacting]
     Active Substance: LOPINAVIR\RITONAVIR
     Dosage: 100 MILLIGRAM, BID (RITONAVIR)
     Route: 065
  10. METHYLPREDNISOLONE. [Interacting]
     Active Substance: METHYLPREDNISOLONE
     Dosage: 50 MILLIGRAM PER DAY
     Route: 042
  11. METHYLPREDNISOLONE. [Interacting]
     Active Substance: METHYLPREDNISOLONE
     Dosage: 100 MILLIGRAM PER DAY
     Route: 065
  12. ENOXAPARIN SODIUM. [Concomitant]
     Active Substance: ENOXAPARIN SODIUM
     Indication: PROPHYLAXIS
     Dosage: UNK
     Route: 065
  13. TACROLIMUS. [Interacting]
     Active Substance: TACROLIMUS
     Dosage: 1.5 MILLIGRAM PER DAY
     Route: 065
  14. AZITHROMYCIN ANHYDROUS. [Interacting]
     Active Substance: AZITHROMYCIN ANHYDROUS
     Indication: DIARRHOEA
  15. COTRIMOXAZOLE [Interacting]
     Active Substance: SULFAMETHOXAZOLE\TRIMETHOPRIM
     Dosage: 80 MILLIGRAM PER DAY (SULFAMETHOXAZOLE)
     Route: 065
  16. CASPOFUNGIN [Interacting]
     Active Substance: CASPOFUNGIN
     Dosage: 50 MILLIGRAM
     Route: 065
  17. AMOXICILLIN/CLAVULANIC ACID [Interacting]
     Active Substance: AMOXICILLIN\CLAVULANIC ACID
     Indication: PRODUCTIVE COUGH
     Dosage: 875 MILLIGRAM, BID (AMOXICILLIN)
     Route: 065
  18. HYDROXYCHLOROQUINE [Interacting]
     Active Substance: HYDROXYCHLOROQUINE
     Indication: COVID-19
     Dosage: 200 MILLIGRAM PER DAY
     Route: 065
  19. LOPINAVIR/RITONAVIR [Interacting]
     Active Substance: LOPINAVIR\RITONAVIR
     Indication: COVID-19
     Dosage: 400 MILLIGRAM, BID (LOPINAVIR)
     Route: 065
  20. MYCOPHENOLATE MOFETIL. [Interacting]
     Active Substance: MYCOPHENOLATE MOFETIL
     Dosage: 720 MILLIGRAM, PER DAY (DOSE REDUCED)
     Route: 065
  21. LINEZOLID. [Interacting]
     Active Substance: LINEZOLID
     Indication: ANTIBIOTIC THERAPY
     Dosage: 1.2 GRAM PER DAY
     Route: 065
  22. MEROPENEM. [Interacting]
     Active Substance: MEROPENEM
     Indication: ANTIBIOTIC THERAPY
     Dosage: 3 GRAM PER DAY
     Route: 065
  23. CASPOFUNGIN [Interacting]
     Active Substance: CASPOFUNGIN
     Indication: ANTIFUNGAL TREATMENT
     Dosage: 70 MILLIGRAM PER DAY
     Route: 065
  24. MYCOPHENOLATE MOFETIL. [Suspect]
     Active Substance: MYCOPHENOLATE MOFETIL
     Indication: RENAL TRANSPLANT
     Dosage: 720 MILLIGRAM, BID
     Route: 065
  25. METHYLPREDNISOLONE. [Interacting]
     Active Substance: METHYLPREDNISOLONE
     Indication: COVID-19
     Dosage: 16 MILLIGRAM PER DAY
     Route: 048
  26. TACROLIMUS. [Interacting]
     Active Substance: TACROLIMUS
     Indication: RENAL TRANSPLANT
     Dosage: 2.5 MILLIGRAM PER DAY
     Route: 065
  27. MYCOPHENOLATE MOFETIL. [Interacting]
     Active Substance: MYCOPHENOLATE MOFETIL
     Dosage: 1080 MILLIGRAM, PER DAY (DOSE REDUCED FROM 1440 MG/DAY TO 1080 MG/DAY)
     Route: 065
  28. PREDNISOLONE. [Interacting]
     Active Substance: PREDNISOLONE
     Indication: RENAL TRANSPLANT
     Dosage: 5 MILLIGRAM PER DAY
     Route: 065

REACTIONS (5)
  - Pneumonia bacterial [Recovered/Resolved]
  - Hyponatraemia [Unknown]
  - Drug interaction [Unknown]
  - Acute kidney injury [Unknown]
  - COVID-19 pneumonia [Recovered/Resolved]
